FAERS Safety Report 6370087-8 (Version None)
Quarter: 2009Q3

REPORT INFORMATION
  Report Type: 
  Country: None (occurrence: None)
  Receive Date: 20090923
  Receipt Date: 20070530
  Transmission Date: 20100115
  Serious: Yes (Other)
  Sender: FDA-Public Use
  Company Number: US-ASTRAZENECA-2006UW21079

PATIENT
  Age: 217 Month
  Sex: Female
  Weight: 64.4 kg

DRUGS (10)
  1. SEROQUEL [Suspect]
     Indication: MOOD SWINGS
     Dosage: 50 MG TO 300 MG
     Route: 048
     Dates: start: 20051214, end: 20060101
  2. SEROQUEL [Suspect]
     Indication: DEPRESSION
     Dosage: 50 MG TO 300 MG
     Route: 048
     Dates: start: 20051214, end: 20060101
  3. SEROQUEL [Suspect]
     Indication: ANXIETY
     Dosage: 50 MG TO 300 MG
     Route: 048
     Dates: start: 20051214, end: 20060101
  4. SEROQUEL [Suspect]
     Indication: SLEEP DISORDER
     Dosage: 50 MG TO 300 MG
     Route: 048
     Dates: start: 20051214, end: 20060101
  5. SEROQUEL [Suspect]
     Indication: AFFECTIVE DISORDER
     Dosage: 50 MG TO 300 MG
     Route: 048
     Dates: start: 20051214, end: 20060101
  6. LAMICTAL [Concomitant]
  7. MARIJUANA [Concomitant]
  8. PREDNISONE TAB [Concomitant]
     Route: 048
  9. TRILEPTAL [Concomitant]
     Route: 048
  10. ZOLOFT [Concomitant]
     Route: 048

REACTIONS (3)
  - KETOACIDOSIS [None]
  - TYPE 1 DIABETES MELLITUS [None]
  - TYPE 2 DIABETES MELLITUS [None]
